FAERS Safety Report 23627909 (Version 1)
Quarter: 2024Q1

REPORT INFORMATION
  Report Type: Spontaneous
  Country: KR (occurrence: KR)
  Receive Date: 20240313
  Receipt Date: 20240313
  Transmission Date: 20240410
  Serious: Yes (Other)
  Sender: FDA-Public Use
  Company Number: PA2024KR000014

PATIENT
  Sex: Female

DRUGS (1)
  1. REMIMAZOLAM [Suspect]
     Active Substance: REMIMAZOLAM
     Indication: Induction of anaesthesia
     Dosage: 20 MILLIGRAM
     Route: 042
     Dates: start: 20230510, end: 20230510

REACTIONS (2)
  - Cerebellar infarction [Recovering/Resolving]
  - Anaphylactic shock [Unknown]

NARRATIVE: CASE EVENT DATE: 20230510
